FAERS Safety Report 4401322-0 (Version None)
Quarter: 2004Q3

REPORT INFORMATION
  Report Type: 
  Country: None (occurrence: None)
  Receive Date: 20040907
  Receipt Date: 20040305
  Transmission Date: 20050211
  Serious: No
  Sender: FDA-Public Use
  Company Number: US-BRISTOL-MYERS SQUIBB COMPANY-12526158

PATIENT
  Age: 66 Year
  Sex: Female
  Weight: 77 kg

DRUGS (6)
  1. COUMADIN [Suspect]
     Indication: TRANSIENT ISCHAEMIC ATTACK
     Dosage: TAKES 3MG + 3.5MG, ALTERNATING DAILY
     Route: 048
  2. COUMADIN [Suspect]
     Indication: BLOOD VISCOSITY INCREASED
     Dosage: TAKES 3MG + 3.5MG, ALTERNATING DAILY
     Route: 048
  3. LEVOXYL [Concomitant]
  4. DYAZIDE [Concomitant]
  5. LIPITOR [Concomitant]
  6. DOXYCYCLINE [Concomitant]

REACTIONS (2)
  - INTERNATIONAL NORMALISED RATIO ABNORMAL [None]
  - INTERNATIONAL NORMALISED RATIO DECREASED [None]
